FAERS Safety Report 19221700 (Version 2)
Quarter: 2021Q2

REPORT INFORMATION
  Report Type: Spontaneous
  Country: US (occurrence: US)
  Receive Date: 20210505
  Receipt Date: 20210505
  Transmission Date: 20210717
  Serious: Yes (Hospitalization)
  Sender: FDA-Public Use
  Company Number: US-GILEAD-2021-0527945

PATIENT
  Age: 61 Year
  Sex: Male

DRUGS (12)
  1. VOSEVI [Suspect]
     Active Substance: SOFOSBUVIR\VELPATASVIR\VOXILAPREVIR
     Indication: CHRONIC HEPATITIS C
     Dosage: 1 DOSAGE FORM, QD
     Route: 048
     Dates: start: 202102
  2. VOSEVI [Suspect]
     Active Substance: SOFOSBUVIR\VELPATASVIR\VOXILAPREVIR
     Dosage: 1 DOSAGE FORM, QD
     Route: 048
  3. OMEPRAZOLE. [Concomitant]
     Active Substance: OMEPRAZOLE
  4. XARELTO [Concomitant]
     Active Substance: RIVAROXABAN
  5. SPIRONOLACTONE. [Concomitant]
     Active Substance: SPIRONOLACTONE
  6. RIFAXIMIN. [Concomitant]
     Active Substance: RIFAXIMIN
  7. FUROSEMIDE. [Concomitant]
     Active Substance: FUROSEMIDE
  8. DOXYCYCLINE. [Concomitant]
     Active Substance: DOXYCYCLINE
  9. CIPROFLOXACIN. [Concomitant]
     Active Substance: CIPROFLOXACIN
  10. PROMACTA [Concomitant]
     Active Substance: ELTROMBOPAG OLAMINE
  11. IBUPROFEN IB [Concomitant]
     Active Substance: IBUPROFEN
  12. MOXIFLOXACIN. [Concomitant]
     Active Substance: MOXIFLOXACIN

REACTIONS (2)
  - Post procedural infection [Unknown]
  - Product dose omission issue [Unknown]

NARRATIVE: CASE EVENT DATE: 20210421
